FAERS Safety Report 12322408 (Version 3)
Quarter: 2016Q3

REPORT INFORMATION
  Report Type: Spontaneous
  Country: DE (occurrence: DE)
  Receive Date: 20160502
  Receipt Date: 20160804
  Transmission Date: 20161109
  Serious: Yes (Other)
  Sender: FDA-Public Use
  Company Number: DE-BAXALTA-2016BLT002818

PATIENT
  Age: 78 Year
  Sex: Male

DRUGS (10)
  1. OBIZUR [Suspect]
     Active Substance: ANTIHEMOPHILIC FACTOR PORCINE, B-DOMAIN TRUNCATED RECOMBINANT
     Indication: BRONCHIAL HAEMORRHAGE
     Dosage: 1000 IU, UNK
     Route: 065
     Dates: start: 201512
  2. PREDNISOLONE. [Concomitant]
     Active Substance: PREDNISOLONE
     Indication: ACQUIRED HAEMOPHILIA
     Route: 065
  3. OBIZUR [Suspect]
     Active Substance: ANTIHEMOPHILIC FACTOR PORCINE, B-DOMAIN TRUNCATED RECOMBINANT
     Indication: INTRA-ABDOMINAL HAEMORRHAGE
     Dosage: 100 IU/KG, UNK
     Route: 065
     Dates: start: 20151201, end: 201512
  4. OBIZUR [Suspect]
     Active Substance: ANTIHEMOPHILIC FACTOR PORCINE, B-DOMAIN TRUNCATED RECOMBINANT
     Indication: ACQUIRED HAEMOPHILIA
  5. OBIZUR [Suspect]
     Active Substance: ANTIHEMOPHILIC FACTOR PORCINE, B-DOMAIN TRUNCATED RECOMBINANT
     Indication: OFF LABEL USE
  6. MARCUMAR [Concomitant]
     Active Substance: PHENPROCOUMON
     Indication: CORONARY ARTERY DISEASE
  7. FEIBA NF [Suspect]
     Active Substance: ANTI-INHIBITOR COAGULANT COMPLEX
     Indication: FACTOR VIII DEFICIENCY
     Dosage: 6000 IU, EVERY 6 HOURS
     Route: 065
  8. OBIZUR [Suspect]
     Active Substance: ANTIHEMOPHILIC FACTOR PORCINE, B-DOMAIN TRUNCATED RECOMBINANT
     Indication: UPPER GASTROINTESTINAL HAEMORRHAGE
  9. CLEXANE [Suspect]
     Active Substance: ENOXAPARIN SODIUM
     Indication: INTENSIVE CARE UNIT ACQUIRED WEAKNESS
     Dosage: UNK
     Route: 065
     Dates: start: 20151201
  10. MARCUMAR [Concomitant]
     Active Substance: PHENPROCOUMON
     Indication: ATRIAL FIBRILLATION
     Route: 065

REACTIONS (5)
  - Intra-abdominal haemorrhage [Recovered/Resolved]
  - Upper gastrointestinal haemorrhage [Recovered/Resolved]
  - Bronchial haemorrhage [Recovered/Resolved]
  - Drug effect decreased [Recovered/Resolved]
  - Muscle haemorrhage [Recovered/Resolved]

NARRATIVE: CASE EVENT DATE: 2015
